FAERS Safety Report 11740461 (Version 2)
Quarter: 2015Q4

REPORT INFORMATION
  Report Type: Spontaneous
  Country: US (occurrence: US)
  Receive Date: 20151110
  Receipt Date: 20151120
  Transmission Date: 20160304
  Serious: No
  Sender: FDA-Public Use
  Company Number: US-ELI_LILLY_AND_COMPANY-US201203001791

PATIENT
  Age: 80 Year
  Sex: Male

DRUGS (1)
  1. FORTEO [Suspect]
     Active Substance: TERIPARATIDE
     Indication: OSTEOPOROSIS
     Dosage: 20 UG, QD
     Route: 065
     Dates: start: 20120301

REACTIONS (7)
  - Back pain [Unknown]
  - Balance disorder [Unknown]
  - Sleep disorder due to a general medical condition [Unknown]
  - Pain [Unknown]
  - Gait disturbance [Unknown]
  - Head discomfort [Unknown]
  - Asthenia [Recovered/Resolved]

NARRATIVE: CASE EVENT DATE: 20120301
